FAERS Safety Report 26069407 (Version 2)
Quarter: 2025Q4

REPORT INFORMATION
  Report Type: Report from Study
  Country: US (occurrence: None)
  Receive Date: 20251120
  Receipt Date: 20251201
  Transmission Date: 20260117
  Serious: Yes (Other)
  Sender: UCB
  Company Number: US-UCBSA-2025072925

PATIENT

DRUGS (2)
  1. BRIVARACETAM [Suspect]
     Active Substance: BRIVARACETAM
     Indication: Epilepsy
     Dosage: 100 MILLIGRAM, 2X/DAY (BID)
  2. NAYZILAM [Suspect]
     Active Substance: MIDAZOLAM
     Indication: Epilepsy
     Dosage: 100 MILLIGRAM, 2X/DAY (BID)

REACTIONS (1)
  - Generalised tonic-clonic seizure [Recovering/Resolving]
